FAERS Safety Report 7369292 (Version 6)
Quarter: 2013Q2

REPORT INFORMATION
  Report Type: Spontaneous
  Country: JP (occurrence: JP)
  Receive Date: 20100428
  Receipt Date: 20130503
  Transmission Date: 20140414
  Serious: Yes (Life-Threatening, Hospitalization)
  Sender: FDA-Public Use
  Company Number: JP-AMGEN-US408397

PATIENT
  Age: 74 Year
  Sex: Female

DRUGS (9)
  1. ENBREL [Suspect]
     Indication: RHEUMATOID ARTHRITIS
     Dosage: 25.0 MG, WEEKLY
     Route: 058
     Dates: start: 20100119, end: 20100325
  2. METHOTREXATE SODIUM [Concomitant]
     Dosage: 8 MG, WEEKLY
     Route: 048
     Dates: start: 2005, end: 20100325
  3. FOLIAMIN [Concomitant]
     Dosage: 5 MG, WEEKLY
     Route: 048
     Dates: end: 20100325
  4. FOLIAMIN [Concomitant]
     Dosage: 5 MG, WEEKLY
     Route: 048
  5. HYPEN [Concomitant]
     Dosage: 400 MG, QD
     Route: 048
  6. HYPEN [Concomitant]
     Dosage: UNK
     Route: 048
  7. SELBEX [Concomitant]
     Dosage: 100 MG, QD
     Route: 048
  8. SELBEX [Concomitant]
     Dosage: UNK
     Route: 048
  9. WARFARIN [Concomitant]
     Dosage: 1.5 MG, 1X/DAY
     Route: 048

REACTIONS (1)
  - Pneumocystis jirovecii pneumonia [Recovered/Resolved]
